FAERS Safety Report 6073259-5 (Version None)
Quarter: 2009Q1

REPORT INFORMATION
  Report Type: 
  Country: None (occurrence: None)
  Receive Date: 20090205
  Receipt Date: 20090123
  Transmission Date: 20090719
  Serious: Yes (Hospitalization)
  Sender: FDA-Public Use
  Company Number: ALA_00234_2009

PATIENT
  Age: 45 Year
  Sex: Male

DRUGS (1)
  1. MESALAMINE [Suspect]
     Indication: COLITIS ULCERATIVE
     Dosage: (1600 MG,

REACTIONS (7)
  - COLITIS ULCERATIVE [None]
  - CONDITION AGGRAVATED [None]
  - EOSINOPHILIA [None]
  - GALLBLADDER DISORDER [None]
  - HEPATITIS [None]
  - HEPATOTOXICITY [None]
  - THROMBOCYTOPENIA [None]
